FAERS Safety Report 18647223 (Version 1)
Quarter: 2020Q4

REPORT INFORMATION
  Report Type: Spontaneous
  Country: IT (occurrence: IT)
  Receive Date: 20201222
  Receipt Date: 20201222
  Transmission Date: 20210114
  Serious: Yes (Other)
  Sender: FDA-Public Use
  Company Number: IT-AUROBINDO-AUR-APL-2020-061915

PATIENT
  Age: 1 Month
  Sex: Female
  Weight: 7 kg

DRUGS (1)
  1. VALGANCICLOVIR. [Suspect]
     Active Substance: VALGANCICLOVIR
     Indication: CYTOMEGALOVIRUS INFECTION
     Dosage: 16 MILLIGRAM/KILOGRAM, ONCE A DAY
     Route: 065
     Dates: start: 20200521, end: 20201130

REACTIONS (3)
  - Haemoglobin decreased [Recovered/Resolved]
  - Neutrophilia [Recovered/Resolved]
  - Off label use [Recovered/Resolved]

NARRATIVE: CASE EVENT DATE: 20200604
